FAERS Safety Report 23920462 (Version 1)
Quarter: 2024Q2

REPORT INFORMATION
  Report Type: Spontaneous
  Country: US (occurrence: None)
  Receive Date: 20240530
  Receipt Date: 20240530
  Transmission Date: 20240716
  Serious: No
  Sender: FDA-Public Use
  Company Number: None

PATIENT

DRUGS (2)
  1. MINOXIDIL [Suspect]
     Active Substance: MINOXIDIL
  2. METHOTREXATE [Suspect]
     Active Substance: METHOTREXATE

REACTIONS (2)
  - Product dispensing error [None]
  - Intercepted product dispensing error [None]

NARRATIVE: CASE EVENT DATE: 20240117
